FAERS Safety Report 15211505 (Version 1)
Quarter: 2018Q3

REPORT INFORMATION
  Report Type: Spontaneous
  Country: US (occurrence: US)
  Receive Date: 20180702
  Receipt Date: 20180702
  Transmission Date: 20181010
  Serious: No
  Sender: FDA-Public Use
  Company Number: None

PATIENT
  Age: 28 Year
  Sex: Female
  Weight: 99.79 kg

DRUGS (3)
  1. VALACYCLOVIR [Concomitant]
     Active Substance: VALACYCLOVIR HYDROCHLORIDE
  2. MULTIVITAMIN [Concomitant]
     Active Substance: VITAMINS
  3. NEXPLANON [Suspect]
     Active Substance: ETONOGESTREL
     Dates: start: 20160815

REACTIONS (5)
  - Arthralgia [None]
  - Musculoskeletal disorder [None]
  - Pain in extremity [None]
  - Discomfort [None]
  - Middle insomnia [None]

NARRATIVE: CASE EVENT DATE: 20180701
